FAERS Safety Report 7909313-X (Version None)
Quarter: 2011Q4

REPORT INFORMATION
  Report Type: 
  Country: None (occurrence: None)
  Receive Date: 20111111
  Receipt Date: 20111108
  Transmission Date: 20120403
  Serious: Yes (Hospitalization, Disabling, Other)
  Sender: FDA-Public Use
  Company Number: US-PFIZER INC-2011147821

PATIENT
  Sex: Male

DRUGS (1)
  1. CHANTIX [Suspect]
     Indication: SMOKING CESSATION THERAPY
     Dosage: STARTER PACK AND ADDITIONAL 1 MONTH SUPPLY
     Dates: start: 20061226, end: 20070122

REACTIONS (3)
  - LIMB INJURY [None]
  - LOSS OF CONSCIOUSNESS [None]
  - LIMB TRAUMATIC AMPUTATION [None]
